FAERS Safety Report 6282844-7 (Version None)
Quarter: 2009Q3

REPORT INFORMATION
  Report Type: 
  Country: None (occurrence: None)
  Receive Date: 20090722
  Receipt Date: 20090722
  Transmission Date: 20100115
  Serious: No
  Sender: FDA-Public Use
  Company Number: None

PATIENT
  Age: 53 Year
  Sex: Female

DRUGS (3)
  1. CRESTOR [Suspect]
     Dosage: 20 MG QD
     Dates: start: 20070914, end: 20070925
  2. AVANDIA [Concomitant]
  3. GABAPENTIN [Concomitant]

REACTIONS (5)
  - ADENOCARCINOMA PANCREAS [None]
  - BILE DUCT OBSTRUCTION [None]
  - HEPATITIS CHOLESTATIC [None]
  - LIVER INJURY [None]
  - PANCREATIC CARCINOMA [None]
